FAERS Safety Report 8287116-7 (Version None)
Quarter: 2012Q2

REPORT INFORMATION
  Report Type: 
  Country: None (occurrence: None)
  Receive Date: 20120416
  Receipt Date: 20120410
  Transmission Date: 20120825
  Serious: Yes (Other)
  Sender: FDA-Public Use
  Company Number: US-BAYER-2012-028982

PATIENT
  Age: 42 Year
  Sex: Female
  Weight: 82.086 kg

DRUGS (5)
  1. ATENOLOL [Concomitant]
     Dosage: 25 MG, QD
  2. LISINOPRIL [Concomitant]
     Dosage: 5 MG, QD
  3. MIRENA [Suspect]
     Indication: MENORRHAGIA
  4. MIRENA [Suspect]
     Indication: CONTRACEPTION
     Dosage: 20 ?G/D, CONT
     Route: 015
     Dates: start: 20120309, end: 20120316
  5. SERTRALINE HYDROCHLORIDE [Concomitant]
     Dosage: 25 MG, QD

REACTIONS (1)
  - DEVICE DISLOCATION [None]
